FAERS Safety Report 7214497-5 (Version None)
Quarter: 2010Q4

REPORT INFORMATION
  Report Type: 
  Country: None (occurrence: None)
  Receive Date: 20101126
  Receipt Date: 20091007
  Transmission Date: 20110411
  Serious: Yes (Disabling, Other)
  Sender: FDA-Public Use
  Company Number: WAES 0805USA00890

PATIENT
  Age: 76 Year
  Sex: Female
  Weight: 71.6683 kg

DRUGS (2)
  1. FOSAMAX [Suspect]
     Indication: OSTEOPOROSIS
     Dosage: 10 MG/PO
     Route: 048
     Dates: start: 19990329, end: 20020501
  2. FOSAMAX [Suspect]
     Indication: OSTEOPOROSIS
     Dosage: 70 MG/WKY/PO
     Route: 048
     Dates: start: 20020819, end: 20061201

REACTIONS (11)
  - ADVERSE EVENT [None]
  - DENTAL CARIES [None]
  - DEPRESSION [None]
  - FISTULA [None]
  - GINGIVITIS [None]
  - LOOSE TOOTH [None]
  - MEMORY IMPAIRMENT [None]
  - OSTEOMYELITIS [None]
  - OSTEONECROSIS [None]
  - PERIODONTITIS [None]
  - RESORPTION BONE INCREASED [None]
